FAERS Safety Report 5850445-8 (Version None)
Quarter: 2008Q3

REPORT INFORMATION
  Report Type: 
  Country: None (occurrence: None)
  Receive Date: 20080818
  Receipt Date: 20080807
  Transmission Date: 20090109
  Serious: No
  Sender: FDA-Public Use
  Company Number: 20085256

PATIENT
  Sex: Female

DRUGS (1)
  1. LIORESAL [Suspect]
     Indication: MUSCLE SPASTICITY
     Dosage: 263 MCG, DAILY, INTRATHECAL
     Route: 037

REACTIONS (5)
  - CATATONIA [None]
  - COGNITIVE DISORDER [None]
  - CONVULSION [None]
  - DRUG INTERACTION [None]
  - PSYCHOTIC DISORDER [None]
